FAERS Safety Report 16104875 (Version 1)
Quarter: 2019Q1

REPORT INFORMATION
  Report Type: Spontaneous
  Country: IL (occurrence: IL)
  Receive Date: 20190322
  Receipt Date: 20190322
  Transmission Date: 20190418
  Serious: Yes (Other)
  Sender: FDA-Public Use
  Company Number: IL-TEVA-2019-IL-1029874

PATIENT
  Age: 66 Year
  Sex: Female

DRUGS (1)
  1. CLOPIDOGREL [Suspect]
     Active Substance: CLOPIDOGREL BISULFATE
     Indication: TRANSIENT ISCHAEMIC ATTACK
     Route: 065
     Dates: start: 20190217

REACTIONS (5)
  - Abdominal pain [Unknown]
  - Paraesthesia [Unknown]
  - Constipation [Unknown]
  - Haemorrhoidal haemorrhage [Unknown]
  - Headache [Unknown]
